FAERS Safety Report 17054158 (Version 1)
Quarter: 2019Q4

REPORT INFORMATION
  Report Type: Spontaneous
  Country: BG (occurrence: BG)
  Receive Date: 20191120
  Receipt Date: 20191120
  Transmission Date: 20200122
  Serious: Yes (Other)
  Sender: FDA-Public Use
  Company Number: NVSC2019BG041017

PATIENT
  Age: 53 Year
  Sex: Male

DRUGS (3)
  1. IBUPROFEN. [Suspect]
     Active Substance: IBUPROFEN
     Indication: NASOPHARYNGITIS
     Route: 065
  2. PARACETAMOL [Suspect]
     Active Substance: ACETAMINOPHEN
     Indication: NASOPHARYNGITIS
     Route: 065
  3. METAMIZOLE SODIUM [Suspect]
     Active Substance: METAMIZOLE SODIUM
     Indication: NASOPHARYNGITIS
     Route: 065

REACTIONS (7)
  - Blister [Recovered/Resolved]
  - Erythema [Recovered/Resolved]
  - Anaemia [Unknown]
  - Systemic lupus erythematosus [Recovered/Resolved]
  - Mouth ulceration [Recovered/Resolved]
  - Skin lesion [Recovered/Resolved]
  - Muscle spasms [Recovered/Resolved]
